FAERS Safety Report 5708674-X (Version None)
Quarter: 2008Q2

REPORT INFORMATION
  Report Type: 
  Country: None (occurrence: None)
  Receive Date: 20080417
  Receipt Date: 20080407
  Transmission Date: 20081010
  Serious: Yes (Hospitalization)
  Sender: FDA-Public Use
  Company Number: FR-AMGEN-UK270472

PATIENT
  Sex: Female

DRUGS (4)
  1. PANITUMUMAB [Suspect]
     Indication: COLORECTAL CANCER
     Route: 042
     Dates: start: 20080123, end: 20080306
  2. IRINOTECAN HCL [Concomitant]
     Dates: start: 20080123, end: 20080306
  3. FLUOROURACIL [Concomitant]
     Dates: start: 20080123, end: 20080306
  4. LEUCOVORIN CALCIUM [Concomitant]
     Dates: start: 20080123, end: 20080306

REACTIONS (1)
  - PULMONARY EMBOLISM [None]
